FAERS Safety Report 7076529-7 (Version None)
Quarter: 2010Q4

REPORT INFORMATION
  Report Type: 
  Country: None (occurrence: None)
  Receive Date: 20101022
  Receipt Date: 20101015
  Transmission Date: 20110411
  Serious: Yes (Other)
  Sender: FDA-Public Use
  Company Number: 20109355

PATIENT
  Age: 27 Year
  Sex: Female

DRUGS (4)
  1. LIORESAL [Suspect]
     Indication: MUSCLE SPASTICITY
     Dosage: DAILY, INTRATHECAL
     Route: 037
  2. FENTANYL [Concomitant]
  3. BUPIVACAINE HCL [Concomitant]
  4. CLONIDINE [Concomitant]

REACTIONS (1)
  - IMPLANT SITE EFFUSION [None]
